FAERS Safety Report 6010130-9 (Version None)
Quarter: 2008Q4

REPORT INFORMATION
  Report Type: 
  Country: None (occurrence: None)
  Receive Date: 20081218
  Receipt Date: 20070126
  Transmission Date: 20090506
  Serious: Yes (Other)
  Sender: FDA-Public Use
  Company Number: US-BAXTER-2008BH010315

PATIENT

DRUGS (2)
  1. IMMUNE GLOBULIN INTRAVENOUS (HUMAN) [Suspect]
     Indication: DEMYELINATING POLYNEUROPATHY
     Dosage: DOSE UNIT:UNKNOWN
     Route: 042
  2. IMMUNE GLOBULIN INTRAVENOUS (HUMAN) [Suspect]
     Dosage: DOSE UNIT:UNKNOWN
     Route: 042

REACTIONS (2)
  - DRUG INTOLERANCE [None]
  - LOSS OF CONSCIOUSNESS [None]
